FAERS Safety Report 17296446 (Version 4)
Quarter: 2020Q4

REPORT INFORMATION
  Report Type: Spontaneous
  Country: JP (occurrence: JP)
  Receive Date: 20200121
  Receipt Date: 20201006
  Transmission Date: 20210113
  Serious: Yes (Hospitalization, Other)
  Sender: FDA-Public Use
  Company Number: JP-AMGEN-JPNSP2020008633

PATIENT
  Age: 77 Year
  Sex: Female
  Weight: 54 kg

DRUGS (13)
  1. LAVIN [Concomitant]
     Dosage: 50 MILLIGRAM (2 TABLET), TID AFTER BREAKFAST, AFTER LUNCH, AFTER DINNER
  2. CINAL [ASCORBIC ACID;CALCIUM PANTOTHENATE] [Concomitant]
     Dosage: 1 TABLET, TID AFTER BREAKFAST, AFTER LUNCH, AFTER DINNER
  3. GASCON [DIMETICONE] [Concomitant]
     Dosage: 1 BOTTLE/10 ML 4 HOURS PRIOR TO TEST
     Dates: start: 20191210
  4. KETOPROFEN. [Concomitant]
     Active Substance: KETOPROFEN
     Dosage: 20 MILLIGRAM (1 PIECE) ONCE DAILY AFFECTED AREA
  5. NEXIUM [Concomitant]
     Active Substance: ESOMEPRAZOLE MAGNESIUM
     Dosage: 10 MILLIGRAM (1CAPSULE), QD AFTER BREAKFAST
  6. NIFEDIPINE. [Concomitant]
     Active Substance: NIFEDIPINE
     Dosage: 10 MILLIGRAM (1 TABLET), QD BEFORE BEDTIME
  7. VALHYDIO [Concomitant]
     Active Substance: HYDROCHLOROTHIAZIDE\VALSARTAN
     Dosage: 1 TABLET, QD AFTER BREAKFAST
  8. MAGNESIUM OXIDE. [Concomitant]
     Active Substance: MAGNESIUM OXIDE
     Dosage: 500 MILLIGRAM (1 TABLET), TID AFTER BREAKFAST, AFTER LUNCH, AFTER DINNER
  9. NIFLEC [Concomitant]
     Active Substance: POLYETHYLENE GLYCOLS\POTASSIUM CHLORIDE\SODIUM BICARBONATE\SODIUM CHLORIDE\SODIUM SULFATE
     Dosage: 1 BOTTLE/10 ML 4 HOURS PRIOR TO TEST
     Route: 048
     Dates: start: 20191210
  10. EVENITY [Suspect]
     Active Substance: ROMOSOZUMAB-AQQG
     Indication: OSTEOPOROSIS
     Dosage: 210 MILLIGRAM, QMO
     Route: 058
     Dates: start: 20190621, end: 20191220
  11. SENNA LEAVES [SENNA ALEXANDRINA LEAF] [Concomitant]
     Indication: CONSTIPATION
     Dosage: 0.5 GRAM
  12. SENNOSIDE [SENNOSIDE A+B] [Concomitant]
     Active Substance: SENNOSIDES A AND B
     Dosage: 12 MILLIGRAM (3 TABLETS), QD BEFORE BEDTIME
  13. MOSAPRIDE CITRATE [Concomitant]
     Active Substance: MOSAPRIDE CITRATE
     Dosage: 5 MILLIGRAM (1 TABLET), TID AFTER BREAKFAST, AFTER LUNCH, AFTER DINNER

REACTIONS (1)
  - Stress cardiomyopathy [Recovering/Resolving]

NARRATIVE: CASE EVENT DATE: 20200109
